FAERS Safety Report 11230918 (Version 2)
Quarter: 2015Q3

REPORT INFORMATION
  Report Type: Report from Study
  Country: US (occurrence: US)
  Receive Date: 20150701
  Receipt Date: 20150714
  Transmission Date: 20151125
  Serious: Yes (Hospitalization)
  Sender: FDA-Public Use
  Company Number: US-BIOGENIDEC-2015BI087792

PATIENT
  Age: 48 Year
  Sex: Female

DRUGS (1)
  1. TECFIDERA [Suspect]
     Active Substance: DIMETHYL FUMARATE
     Indication: MULTIPLE SCLEROSIS
     Route: 048
     Dates: start: 20150117

REACTIONS (4)
  - Bladder prolapse [Recovered/Resolved with Sequelae]
  - Rectal prolapse [Recovered/Resolved with Sequelae]
  - Fatigue [Not Recovered/Not Resolved]
  - Vaginal prolapse [Recovered/Resolved with Sequelae]
